FAERS Safety Report 5030620-5 (Version None)
Quarter: 2006Q2

REPORT INFORMATION
  Report Type: 
  Country: None (occurrence: None)
  Receive Date: 20060620
  Receipt Date: 20060612
  Transmission Date: 20061013
  Serious: Yes (Other)
  Sender: FDA-Public Use
  Company Number: PT-MERCK-0606PRT00003

PATIENT
  Age: 64 Year
  Sex: Female

DRUGS (4)
  1. FOSAMAX PLUS D [Suspect]
     Indication: OSTEOPOROSIS POSTMENOPAUSAL
     Route: 048
     Dates: start: 20060501, end: 20060531
  2. FOSAMAX PLUS D [Suspect]
     Route: 048
     Dates: start: 20060601
  3. ALPRAZOLAM [Concomitant]
     Route: 065
  4. TRIMETAZIDINE HYDROCHLORIDE [Concomitant]
     Route: 065

REACTIONS (2)
  - DERMATITIS ALLERGIC [None]
  - PRURITUS [None]
